FAERS Safety Report 7232874-3 (Version None)
Quarter: 2011Q1

REPORT INFORMATION
  Report Type: 
  Country: None (occurrence: None)
  Receive Date: 20110119
  Receipt Date: 20110106
  Transmission Date: 20110831
  Serious: Yes (Disabling, Other)
  Sender: FDA-Public Use
  Company Number: PHHY2011AU01538

PATIENT
  Sex: Female

DRUGS (2)
  1. ACLASTA [Suspect]
     Indication: OSTEOPOROSIS
     Dosage: 5 MG/ 100 ML
     Route: 042
     Dates: start: 20100101
  2. CALCIUM W/VITAMIN D NOS [Concomitant]
     Indication: OSTEOPOROSIS

REACTIONS (3)
  - GINGIVITIS [None]
  - TOOTH FRACTURE [None]
  - TOOTHACHE [None]
